FAERS Safety Report 8445454 (Version 3)
Quarter: 2013Q1

REPORT INFORMATION
  Report Type: Spontaneous
  Country: US (occurrence: US)
  Receive Date: 20120307
  Receipt Date: 20130215
  Transmission Date: 20140127
  Serious: Yes (Hospitalization)
  Sender: FDA-Public Use
  Company Number: US-BAYER-2012-020480

PATIENT
  Age: 27 Year
  Sex: Female
  Weight: 81.63 kg

DRUGS (10)
  1. OCELLA [Suspect]
     Indication: CONTRACEPTION
     Dosage: UNK
     Dates: start: 200912, end: 201004
  2. AMOXICILLIN [Concomitant]
     Dosage: 500 MG, UNK
     Route: 048
  3. AVELOX [Concomitant]
     Dosage: 400 MG, UNK
     Route: 048
  4. IBUPROFEN [Concomitant]
     Indication: PAIN
     Dosage: 800 MG, UNK
     Route: 048
  5. SEROQUEL [Concomitant]
     Dosage: 400 MG, UNK
     Route: 048
  6. WELLBUTRIN [Concomitant]
     Dosage: 150 MG, UNK
     Route: 048
  7. LEXAPRO [Concomitant]
     Dosage: 20 MG, UNK
     Route: 048
  8. AMBIEN [Concomitant]
     Dosage: 10 MG, UNK
     Route: 048
  9. CELEBREX [Concomitant]
     Dosage: 200 MG, UNK
     Route: 048
  10. ALCLOMETASONE [Concomitant]
     Dosage: 0.05 UNK, UNK
     Route: 061

REACTIONS (9)
  - Pulmonary embolism [None]
  - Pain [None]
  - Anxiety [None]
  - Anhedonia [None]
  - Fear [None]
  - Psychological trauma [None]
  - Dyspnoea [None]
  - Chest pain [None]
  - Haemoptysis [None]
